FAERS Safety Report 12943203 (Version 1)
Quarter: 2016Q4

REPORT INFORMATION
  Report Type: Spontaneous
  Country: US (occurrence: US)
  Receive Date: 20161115
  Receipt Date: 20161115
  Transmission Date: 20170207
  Serious: No
  Sender: FDA-Public Use
  Company Number: US-GLAXOSMITHKLINE-US2016166401

PATIENT
  Age: 94 Year
  Sex: Female

DRUGS (3)
  1. ADVIL [Suspect]
     Active Substance: IBUPROFEN
     Indication: PRODUCT USED FOR UNKNOWN INDICATION
     Dosage: UNK
     Dates: start: 20161105
  2. IBUPROFEN. [Suspect]
     Active Substance: IBUPROFEN
     Indication: PRODUCT USED FOR UNKNOWN INDICATION
     Dosage: UNK
  3. VOLTAREN [Suspect]
     Active Substance: DICLOFENAC SODIUM
     Indication: ARTHRITIS
     Dosage: UNK
     Dates: start: 20161027, end: 20161107

REACTIONS (5)
  - Abdominal discomfort [Unknown]
  - Contraindicated product administered [Unknown]
  - Intentional product misuse [Unknown]
  - Labelled drug-drug interaction medication error [Unknown]
  - Dysgeusia [Recovering/Resolving]

NARRATIVE: CASE EVENT DATE: 2016
